FAERS Safety Report 23036569 (Version 1)
Quarter: 2023Q4

REPORT INFORMATION
  Report Type: Spontaneous
  Country: PL (occurrence: PL)
  Receive Date: 20231006
  Receipt Date: 20231006
  Transmission Date: 20240110
  Serious: Yes (Other)
  Sender: FDA-Public Use
  Company Number: None

PATIENT
  Age: 72 Year
  Sex: Male
  Weight: 103 kg

DRUGS (2)
  1. VECTIBIX [Suspect]
     Active Substance: PANITUMUMAB
     Indication: Colon cancer
     Dosage: 400MG, LOT: 1100681A, EXP: 30/06/2021;100MG, LOT: 1108450A, EXP: 30/04/2020
     Route: 040
     Dates: start: 20191021
  2. VECTIBIX [Suspect]
     Active Substance: PANITUMUMAB
     Dosage: 400MG, LOT: 1100681A, EXP: 30/06/2021;100MG, LOT: 1108450A, EXP: 30/04/2020
     Route: 040

REACTIONS (1)
  - Dermatitis [Recovering/Resolving]

NARRATIVE: CASE EVENT DATE: 20191101
